FAERS Safety Report 7863585-9 (Version None)
Quarter: 2011Q4

REPORT INFORMATION
  Report Type: 
  Country: None (occurrence: None)
  Receive Date: 20111027
  Receipt Date: 20101207
  Transmission Date: 20120403
  Serious: No
  Sender: FDA-Public Use
  Company Number: US-AMGEN-USASP2010008083

PATIENT
  Age: 4 Year
  Sex: Female

DRUGS (1)
  1. ENBREL [Suspect]
     Indication: JUVENILE ARTHRITIS
     Dosage: UNK
     Dates: start: 20100915

REACTIONS (6)
  - DRUG INEFFECTIVE [None]
  - INJECTION SITE SWELLING [None]
  - TENDON DISORDER [None]
  - PAIN IN EXTREMITY [None]
  - ARTHRALGIA [None]
  - INJECTION SITE PAIN [None]
